FAERS Safety Report 8151597 (Version 8)
Quarter: 2013Q2

REPORT INFORMATION
  Report Type: Spontaneous
  Country: US (occurrence: US)
  Receive Date: 20110922
  Receipt Date: 20130417
  Transmission Date: 20140414
  Serious: Yes (Hospitalization)
  Sender: FDA-Public Use
  Company Number: US-ASTRAZENECA-2010SE51605

PATIENT
  Age: 56 Year
  Sex: Female
  Weight: 62.1 kg

DRUGS (30)
  1. SEROQUEL [Suspect]
     Indication: DEPRESSION
     Route: 048
  2. SEROQUEL [Suspect]
     Indication: BIPOLAR DISORDER
     Route: 048
  3. SEROQUEL [Suspect]
     Indication: SLEEP DISORDER
     Route: 048
  4. SEROQUEL [Suspect]
     Indication: DEPRESSION
     Route: 048
  5. SEROQUEL [Suspect]
     Indication: BIPOLAR DISORDER
     Route: 048
  6. SEROQUEL [Suspect]
     Indication: SLEEP DISORDER
     Route: 048
  7. SEROQUEL [Suspect]
     Indication: DEPRESSION
     Route: 048
  8. SEROQUEL [Suspect]
     Indication: BIPOLAR DISORDER
     Route: 048
  9. SEROQUEL [Suspect]
     Indication: SLEEP DISORDER
     Route: 048
  10. SEROQUEL [Suspect]
     Indication: DEPRESSION
     Route: 048
     Dates: start: 2009
  11. SEROQUEL [Suspect]
     Indication: BIPOLAR DISORDER
     Route: 048
     Dates: start: 2009
  12. SEROQUEL [Suspect]
     Indication: SLEEP DISORDER
     Route: 048
     Dates: start: 2009
  13. SEROQUEL [Suspect]
     Indication: DEPRESSION
     Route: 048
  14. SEROQUEL [Suspect]
     Indication: BIPOLAR DISORDER
     Route: 048
  15. SEROQUEL [Suspect]
     Indication: SLEEP DISORDER
     Route: 048
  16. SEROQUEL [Suspect]
     Indication: DEPRESSION
     Route: 048
  17. SEROQUEL [Suspect]
     Indication: BIPOLAR DISORDER
     Route: 048
  18. SEROQUEL [Suspect]
     Indication: SLEEP DISORDER
     Route: 048
  19. SEROQUEL [Suspect]
     Indication: DEPRESSION
     Route: 048
  20. SEROQUEL [Suspect]
     Indication: BIPOLAR DISORDER
     Route: 048
  21. SEROQUEL [Suspect]
     Indication: SLEEP DISORDER
     Route: 048
  22. SEROQUEL [Suspect]
     Indication: DEPRESSION
     Route: 048
  23. SEROQUEL [Suspect]
     Indication: BIPOLAR DISORDER
     Route: 048
  24. SEROQUEL [Suspect]
     Indication: SLEEP DISORDER
     Route: 048
  25. SEROQUEL [Suspect]
     Indication: DEPRESSION
     Route: 048
  26. SEROQUEL [Suspect]
     Indication: BIPOLAR DISORDER
     Route: 048
  27. SEROQUEL [Suspect]
     Indication: SLEEP DISORDER
     Route: 048
  28. LITHIUM GENERIC [Concomitant]
     Indication: CONVULSION
  29. DIVALPROEX [Concomitant]
     Indication: CONVULSION
     Route: 048
  30. CHLORDIAZEPOXIDE [Concomitant]
     Indication: SOCIAL PHOBIA
     Route: 048

REACTIONS (21)
  - Suicidal behaviour [Recovered/Resolved]
  - Insomnia [Recovered/Resolved]
  - Impaired work ability [Unknown]
  - Gait disturbance [Unknown]
  - Anxiety [Unknown]
  - Discomfort [Unknown]
  - Balance disorder [Unknown]
  - Activities of daily living impaired [Unknown]
  - Social avoidant behaviour [Recovered/Resolved]
  - Feeling abnormal [Unknown]
  - Laziness [Unknown]
  - Paranoia [Recovered/Resolved]
  - Therapeutic response unexpected [Unknown]
  - Stress [Unknown]
  - Bipolar disorder [Unknown]
  - Dysphonia [Unknown]
  - Tremor [Recovered/Resolved]
  - Drug withdrawal syndrome [Recovered/Resolved]
  - Drug dose omission [Unknown]
  - Off label use [Unknown]
  - Drug ineffective [Unknown]
